FAERS Safety Report 9071500 (Version 1)
Quarter: 2013Q1

REPORT INFORMATION
  Report Type: Spontaneous
  Country: US (occurrence: US)
  Receive Date: 20130206
  Receipt Date: 20130206
  Transmission Date: 20140127
  Serious: No
  Sender: FDA-Public Use
  Company Number: US-ALLERGAN-1211995US

PATIENT
  Age: 78 Year
  Sex: Female

DRUGS (1)
  1. RESTASIS? [Suspect]
     Indication: DRY EYE
     Dosage: UNK
     Route: 047
     Dates: start: 2010

REACTIONS (4)
  - Alopecia [Not Recovered/Not Resolved]
  - Shoulder operation [Unknown]
  - Instillation site pain [Recovered/Resolved]
  - Drug ineffective [Unknown]
